FAERS Safety Report 7470319-9 (Version None)
Quarter: 2011Q2

REPORT INFORMATION
  Report Type: 
  Country: None (occurrence: None)
  Receive Date: 20110510
  Receipt Date: 20091122
  Transmission Date: 20111010
  Serious: Yes (Other)
  Sender: FDA-Public Use
  Company Number: US-BAYER-201041948NA

PATIENT
  Age: 68 Year
  Sex: Male
  Weight: 106.12 kg

DRUGS (13)
  1. PRAZOSIN HCL [Concomitant]
     Dosage: 1 MG, BID
     Route: 048
  2. NITROGLYCERIN [Concomitant]
     Indication: CHEST PAIN
     Dosage: 1/150 AS NEEDED
     Route: 060
  3. LIPITOR [Concomitant]
     Dosage: 20 MG, QD
     Route: 048
  4. PROTAMINE SULFATE [Concomitant]
     Dosage: 250 MG, UNK
     Route: 042
     Dates: start: 20031206, end: 20031206
  5. METOLAZONE [Concomitant]
     Dosage: 5 MG, QD
     Route: 048
  6. PREDNISONE [Concomitant]
     Dosage: 5 MG, QD
     Route: 048
  7. NORVASC [Concomitant]
     Dosage: 10 MG, QD
     Route: 048
  8. TOPROL-XL [Concomitant]
     Dosage: 75 MG, QD
     Route: 048
  9. HEPARIN [Concomitant]
     Dosage: 25,000 UNITS INFUSION
     Route: 042
     Dates: start: 20031206, end: 20031206
  10. TRASYLOL [Suspect]
     Indication: CORONARY ARTERY BYPASS
     Dosage: TEST DOSE (UNSPECIFIED AMOUNT)
     Dates: start: 20031208
  11. ACETYLSALICYLIC ACID SRT [Concomitant]
  12. LESCOL [Concomitant]
     Dosage: 20MG AT HOUR OF SLEEP EVERY NIGHT
     Route: 048
  13. IMDUR [Concomitant]
     Dosage: 60 MG, QD
     Route: 048

REACTIONS (10)
  - UNEVALUABLE EVENT [None]
  - EMOTIONAL DISTRESS [None]
  - INJURY [None]
  - STRESS [None]
  - RENAL FAILURE [None]
  - FEAR [None]
  - ANXIETY [None]
  - RENAL INJURY [None]
  - RENAL IMPAIRMENT [None]
  - PAIN [None]
